FAERS Safety Report 8853985 (Version 2)
Quarter: 2012Q4

REPORT INFORMATION
  Report Type: 
  Country: AR (occurrence: AR)
  Receive Date: 20121022
  Receipt Date: 20121025
  Transmission Date: 20130627
  Serious: Yes (Hospitalization, Other)
  Sender: FDA-Public Use
  Company Number: AR-UCBSA-069086

PATIENT
  Sex: Male

DRUGS (8)
  1. VIMPAT [Suspect]
     Indication: CEREBRAL PALSY
     Route: 048
     Dates: start: 20120905, end: 20121005
  2. VIMPAT [Suspect]
     Indication: EPILEPSY
     Route: 048
     Dates: start: 20120905, end: 20121005
  3. VIMPAT [Suspect]
     Indication: CEREBRAL PALSY
     Route: 048
     Dates: start: 20120828, end: 20120904
  4. VIMPAT [Suspect]
     Indication: EPILEPSY
     Route: 048
     Dates: start: 20120828, end: 20120904
  5. BROMPERIDOL [Concomitant]
     Dosage: DAILY DOSE: 40DROPS DAILY (2MG/ML)
  6. CARBAMAZEPINE [Concomitant]
     Dosage: DAILY DOSE: 1200MG
  7. VALPROIC ACID [Concomitant]
     Dosage: DAILY DOSE: 400MG
  8. CLONAZEPAM [Concomitant]
     Dosage: DAILY DOSE: 4MG

REACTIONS (2)
  - Hepatitis toxic [Recovered/Resolved]
  - Rash [Recovered/Resolved]
